FAERS Safety Report 14235301 (Version 1)
Quarter: 2017Q4

REPORT INFORMATION
  Report Type: Spontaneous
  Country: US (occurrence: US)
  Receive Date: 20171129
  Receipt Date: 20171129
  Transmission Date: 20180321
  Serious: Yes (Other)
  Sender: FDA-Public Use
  Company Number: US-CIPLA LTD.-2017US21320

PATIENT

DRUGS (5)
  1. CISPLATIN. [Suspect]
     Active Substance: CISPLATIN
     Indication: SQUAMOUS CELL CARCINOMA OF THE HYPOPHARYNX
     Dosage: 75 MG/M2, ON DAY 1
     Route: 042
  2. PACLITAXEL. [Suspect]
     Active Substance: PACLITAXEL
     Indication: SQUAMOUS CELL CARCINOMA OF THE HYPOPHARYNX
     Dosage: 50 MG/M2, WEEKLY
     Route: 065
  3. FLUOROURACIL. [Suspect]
     Active Substance: FLUOROURACIL
     Indication: SQUAMOUS CELL CARCINOMA OF THE HYPOPHARYNX
     Dosage: 750 MG/M2, PER DAY ON DAYS 1-5, CONTINUOUS INFUSION
     Route: 042
  4. CARBOPLATIN. [Suspect]
     Active Substance: CARBOPLATIN
     Indication: SQUAMOUS CELL CARCINOMA OF THE HYPOPHARYNX
     Dosage: AUC 1.5, WEEKLY
     Route: 065
  5. DOCETAXEL. [Suspect]
     Active Substance: DOCETAXEL
     Indication: SQUAMOUS CELL CARCINOMA OF THE HYPOPHARYNX
     Dosage: 75 MG/M2, ON DAY 1
     Route: 042

REACTIONS (1)
  - Disease recurrence [Unknown]
